FAERS Safety Report 7827724-8 (Version None)
Quarter: 2011Q4

REPORT INFORMATION
  Report Type: 
  Country: None (occurrence: None)
  Receive Date: 20111020
  Receipt Date: 20111017
  Transmission Date: 20120403
  Serious: Yes (Other)
  Sender: FDA-Public Use
  Company Number: GB-PFIZER INC-2011249675

PATIENT
  Age: 41 Year
  Sex: Female
  Weight: 79 kg

DRUGS (6)
  1. VARENICLINE TARTRATE [Suspect]
     Dosage: UNK
     Dates: start: 20110919
  2. ACETAMINOPHEN AND CODEINE PHOSPHATE [Concomitant]
     Dosage: UNK
     Dates: start: 20110725
  3. NICOTINE [Concomitant]
     Dosage: UNK
     Dates: start: 20110627
  4. SALBUTAMOL [Concomitant]
     Dosage: UNK
     Dates: start: 20110725, end: 20110822
  5. OTOMIZE [Concomitant]
     Dosage: UNK
     Dates: start: 20110930, end: 20111007
  6. NICORETTE [Concomitant]
     Dosage: UNK
     Dates: start: 20110704

REACTIONS (1)
  - ESSENTIAL HYPERTENSION [None]
